FAERS Safety Report 4262128-9 (Version None)
Quarter: 2004Q1

REPORT INFORMATION
  Report Type: 
  Country: None (occurrence: None)
  Receive Date: 20040102
  Receipt Date: 20031229
  Transmission Date: 20041129
  Serious: Yes (Death)
  Sender: FDA-Public Use
  Company Number: US-GLAXOSMITHKLINE-A0490830A

PATIENT

DRUGS (2)
  1. TOPOTECAN [Suspect]
     Route: 042
  2. VINORELBINE TARTRATE [Suspect]
     Route: 042

REACTIONS (1)
  - CARDIAC ARREST [None]
